FAERS Safety Report 4757394-7 (Version None)
Quarter: 2005Q3

REPORT INFORMATION
  Report Type: 
  Country: None (occurrence: None)
  Receive Date: 20050829
  Receipt Date: 20050815
  Transmission Date: 20060218
  Serious: Yes (Other)
  Sender: FDA-Public Use
  Company Number: 2005116007

PATIENT
  Sex: Male

DRUGS (1)
  1. NORVASC [Suspect]
     Indication: BLOOD PRESSURE
     Dosage: 10 MG (10 MG, DAILY INTERVAL: EVERY DAY), ORAL
     Route: 048
     Dates: start: 20020101

REACTIONS (1)
  - CARDIAC OPERATION [None]
